FAERS Safety Report 5794180-3 (Version None)
Quarter: 2008Q2

REPORT INFORMATION
  Report Type: 
  Country: None (occurrence: None)
  Receive Date: 20080627
  Receipt Date: 20080616
  Transmission Date: 20081010
  Serious: Yes (Hospitalization, Other)
  Sender: FDA-Public Use
  Company Number: DE-PFIZER INC-2008050790

PATIENT
  Age: 56 Year
  Sex: Female

DRUGS (4)
  1. LYRICA [Suspect]
     Indication: DEPRESSION
     Dosage: DAILY DOSE:225MG
     Route: 048
  2. CYMBALTA [Suspect]
     Indication: DEPRESSION
     Dosage: DAILY DOSE:120MG
     Route: 048
  3. ZOLPIDEM TARTRATE [Concomitant]
  4. LORAZEPAM [Concomitant]
     Dates: start: 20070419, end: 20070524

REACTIONS (7)
  - ARTHRITIS [None]
  - GASTROINTESTINAL HAEMORRHAGE [None]
  - HYPERAEMIA [None]
  - JOINT SWELLING [None]
  - PULMONARY CONGESTION [None]
  - RECTAL HAEMORRHAGE [None]
  - REITER'S SYNDROME [None]
